FAERS Safety Report 25179903 (Version 1)
Quarter: 2025Q2

REPORT INFORMATION
  Report Type: Report from Study
  Country: GB (occurrence: GB)
  Receive Date: 20250409
  Receipt Date: 20250409
  Transmission Date: 20250717
  Serious: Yes (Other)
  Sender: ALEXION PHARMACEUTICALS
  Company Number: GB-AstraZeneca-CH-00840872A

PATIENT
  Age: 75 Year

DRUGS (1)
  1. BENRALIZUMAB [Suspect]
     Active Substance: BENRALIZUMAB
     Indication: Asthma

REACTIONS (4)
  - Blindness [Recovered/Resolved]
  - Mouth ulceration [Recovered/Resolved]
  - Skin ulcer [Recovered/Resolved]
  - Injection site pain [Unknown]
